FAERS Safety Report 13846569 (Version 2)
Quarter: 2017Q4

REPORT INFORMATION
  Report Type: Spontaneous
  Country: JP (occurrence: JP)
  Receive Date: 20170808
  Receipt Date: 20171108
  Transmission Date: 20180320
  Serious: Yes (Hospitalization, Other)
  Sender: FDA-Public Use
  Company Number: PHJP2016JP027254

PATIENT
  Age: 68 Year
  Sex: Female

DRUGS (1)
  1. PAZOPANIB [Suspect]
     Active Substance: PAZOPANIB
     Indication: RENAL CELL CARCINOMA STAGE II
     Dosage: 600 MG, QD
     Route: 048
     Dates: start: 2015

REACTIONS (4)
  - Fatigue [Unknown]
  - Palpitations [Unknown]
  - Hepatic function abnormal [Recovering/Resolving]
  - Hyperthyroidism [Recovered/Resolved]
